FAERS Safety Report 7812562-2 (Version None)
Quarter: 2011Q4

REPORT INFORMATION
  Report Type: 
  Country: None (occurrence: None)
  Receive Date: 20111013
  Receipt Date: 20110812
  Transmission Date: 20120403
  Serious: No
  Sender: FDA-Public Use
  Company Number: US-NOVEN-11US003061

PATIENT
  Sex: Female

DRUGS (2)
  1. FENTANYL [Suspect]
     Indication: NEURALGIA
     Dosage: 25 UG/HR, Q72H
     Route: 062
     Dates: start: 20110101
  2. NEURONTIN [Concomitant]
     Indication: MUSCLE SPASTICITY
     Route: 048

REACTIONS (2)
  - DYSKINESIA [None]
  - INSOMNIA [None]
